FAERS Safety Report 6854556-X (Version None)
Quarter: 2010Q3

REPORT INFORMATION
  Report Type: 
  Country: None (occurrence: None)
  Receive Date: 20100717
  Receipt Date: 20080108
  Transmission Date: 20110219
  Serious: No
  Sender: FDA-Public Use
  Company Number: US-PFIZER INC-2008002767

PATIENT
  Sex: Male
  Weight: 72.7 kg

DRUGS (3)
  1. CHANTIX [Suspect]
     Indication: SMOKING CESSATION THERAPY
     Dates: start: 20080106
  2. ADDERALL 10 [Interacting]
     Indication: ATTENTION DEFICIT/HYPERACTIVITY DISORDER
     Dates: start: 20080106
  3. DALLERGY [Interacting]
     Indication: HYPERSENSITIVITY
     Dates: start: 20080106

REACTIONS (5)
  - DECREASED APPETITE [None]
  - DEPRESSION [None]
  - DRUG INTERACTION [None]
  - INSOMNIA [None]
  - MEDICATION ERROR [None]
